FAERS Safety Report 16179166 (Version 3)
Quarter: 2019Q2

REPORT INFORMATION
  Report Type: Spontaneous
  Country: JP (occurrence: JP)
  Receive Date: 20190410
  Receipt Date: 20190606
  Transmission Date: 20190711
  Serious: Yes (Life-Threatening, Other)
  Sender: FDA-Public Use
  Company Number: JP-BRISTOL-MYERS SQUIBB COMPANY-BMS-2019-032045

PATIENT
  Sex: Male
  Weight: 50 kg

DRUGS (8)
  1. MUCOSOLVAN L [Concomitant]
     Active Substance: AMBROXOL HYDROCHLORIDE
     Indication: BRONCHITIS CHRONIC
     Dosage: 45 MILLIGRAM, QD
     Route: 048
     Dates: start: 20131114
  2. ORENCIA [Suspect]
     Active Substance: ABATACEPT
     Indication: RHEUMATOID ARTHRITIS
     Dosage: 500 MILLIGRAM, Q4WK
     Route: 041
     Dates: start: 20160506, end: 20171023
  3. ORENCIA [Suspect]
     Active Substance: ABATACEPT
     Indication: RHEUMATOID ARTHRITIS
     Dosage: 125 MILLIGRAM, QWK
     Route: 058
     Dates: start: 20171124, end: 20190218
  4. RIMATIL [Concomitant]
     Active Substance: BUCILLAMINE
     Indication: RHEUMATOID ARTHRITIS
     Dosage: 100 MILLIGRAM, QD
     Route: 048
     Dates: start: 20170331, end: 20181018
  5. KLARICID                           /00984601/ [Concomitant]
     Active Substance: CLARITHROMYCIN
     Indication: BRONCHITIS CHRONIC
     Dosage: 200 MILLIGRAM, QD
     Route: 048
     Dates: start: 20131114
  6. CARERAM [Concomitant]
     Active Substance: IGURATIMOD
     Indication: RHEUMATOID ARTHRITIS
     Dosage: 25 MILLIGRAM, BID
     Route: 048
     Dates: start: 20150824
  7. AZULFIDINE EN-TABS [Concomitant]
     Active Substance: SULFASALAZINE
     Indication: RHEUMATOID ARTHRITIS
     Dosage: 500 MILLIGRAM, BID
     Route: 048
     Dates: start: 20130829, end: 20170330
  8. CANDESARTAN. [Concomitant]
     Active Substance: CANDESARTAN
     Indication: HYPERTENSION
     Dosage: 8 MILLIGRAM, QD
     Route: 048
     Dates: start: 20170623

REACTIONS (9)
  - Renal cyst [Unknown]
  - Metastases to liver [Not Recovered/Not Resolved]
  - Lung neoplasm malignant [Unknown]
  - Atelectasis [Unknown]
  - Pleural effusion [Unknown]
  - Gallbladder polyp [Unknown]
  - Adenocarcinoma gastric [Not Recovered/Not Resolved]
  - Hepatic cyst [Unknown]
  - Cholelithiasis [Unknown]
